FAERS Safety Report 7470025-0 (Version None)
Quarter: 2011Q2

REPORT INFORMATION
  Report Type: 
  Country: None (occurrence: None)
  Receive Date: 20110510
  Receipt Date: 20110502
  Transmission Date: 20111010
  Serious: Yes (Other)
  Sender: FDA-Public Use
  Company Number: US-ROCHE-775789

PATIENT
  Age: 24 Year
  Sex: Male

DRUGS (3)
  1. GANCICLOVIR [Suspect]
     Route: 065
  2. TACROLIMUS [Suspect]
     Route: 065
  3. MYCOPHENOLATE MOFETIL [Suspect]
     Route: 065

REACTIONS (2)
  - RENAL FAILURE ACUTE [None]
  - NEUTROPHIL PELGER-HUET ANOMALY PRESENT [None]
